FAERS Safety Report 12080376 (Version 1)
Quarter: 2016Q1

REPORT INFORMATION
  Report Type: Spontaneous
  Country: FR (occurrence: FR)
  Receive Date: 20160216
  Receipt Date: 20160216
  Transmission Date: 20160526
  Serious: Yes (Hospitalization)
  Sender: FDA-Public Use
  Company Number: FR-PFIZER INC-2016079998

PATIENT
  Age: 72 Year
  Sex: Female

DRUGS (19)
  1. SKENAN [Concomitant]
     Active Substance: MORPHINE SULFATE
     Indication: ARTHRALGIA
     Dosage: 10 MG, 1X/DAY
     Route: 048
     Dates: start: 20150202
  2. PARACETAMOL [Concomitant]
     Active Substance: ACETAMINOPHEN
     Dosage: 1 G, 4X/DAY
     Dates: start: 20150110
  3. CARDENSIEL [Concomitant]
     Active Substance: BISOPROLOL FUMARATE
     Dosage: 2.5 MG, 1X/DAY
     Route: 048
  4. CERIS [Concomitant]
     Active Substance: TROSPIUM CHLORIDE
     Dosage: 20 MG, 1X/DAY
     Route: 048
  5. CLINDAMYCIN [Concomitant]
     Active Substance: CLINDAMYCIN\CLINDAMYCIN PHOSPHATE
     Indication: DEVICE RELATED INFECTION
     Dosage: 2 DF, 3X/DAY
     Route: 048
     Dates: start: 20150123, end: 201502
  6. ACTISKENAN [Concomitant]
     Active Substance: MORPHINE SULFATE
     Dosage: 40 MG, DAILY (AS NEEDED)
     Route: 048
     Dates: start: 20150210
  7. PRIMPERAN [Concomitant]
     Active Substance: METOCLOPRAMIDE HYDROCHLORIDE
     Dosage: 1 DF, 3X/DAY (AS NEEDED)
     Route: 048
     Dates: start: 20150126
  8. TERCIAN /00759301/ [Concomitant]
     Active Substance: CYAMEMAZINE
     Dosage: 25 MG, 1X/DAY
     Dates: start: 20150121
  9. ALLOPURINOL. [Concomitant]
     Active Substance: ALLOPURINOL
     Dosage: 200 MG, 1X/DAY
     Route: 048
  10. VALIUM [Concomitant]
     Active Substance: DIAZEPAM
     Dosage: 2 MG, 1X/DAY
     Route: 048
     Dates: start: 20150109
  11. SERETIDE [Concomitant]
     Active Substance: FLUTICASONE FUROATE\SALMETEROL XINAFOATE
     Dosage: 250 UG, 2X/DAY
     Route: 048
  12. LERCANIDIPINE HYDROCHLORIDE [Concomitant]
     Active Substance: LERCANIDIPINE HYDROCHLORIDE
     Dosage: 10 MG, 1X/DAY
     Route: 048
  13. LEVOFLOXACINE /01278901/ [Concomitant]
     Active Substance: LEVOFLOXACIN
     Indication: DEVICE RELATED INFECTION
     Dosage: 0.5 DF, 3X/DAY
     Route: 048
     Dates: start: 20150126, end: 201502
  14. ASPIRINE [Concomitant]
     Active Substance: ASPIRIN
     Dosage: 100 MG, 1X/DAY
     Route: 048
  15. PAROXETINE [Concomitant]
     Active Substance: PAROXETINE\PAROXETINE HYDROCHLORIDE
     Dosage: 20 MG, 1X/DAY
     Route: 048
     Dates: start: 20150109
  16. FRAGMINE [Suspect]
     Active Substance: DALTEPARIN SODIUM
     Indication: PROPHYLAXIS
     Dosage: 5000 IU, 1X/DAY
     Route: 058
     Dates: start: 20150110, end: 20150214
  17. CRESTOR [Concomitant]
     Active Substance: ROSUVASTATIN CALCIUM
     Dosage: 5 MG, 1X/DAY
     Route: 048
  18. EUPANTOL [Concomitant]
     Active Substance: PANTOPRAZOLE SODIUM
     Dosage: 20 MG, 1X/DAY
     Route: 048
  19. LEXOMIL [Concomitant]
     Active Substance: BROMAZEPAM
     Dosage: 3 MG, 1X/DAY
     Route: 048
     Dates: start: 20150129

REACTIONS (1)
  - Angioedema [Recovered/Resolved]

NARRATIVE: CASE EVENT DATE: 20150212
